FAERS Safety Report 4908784-0 (Version None)
Quarter: 2006Q1

REPORT INFORMATION
  Report Type: 
  Country: None (occurrence: None)
  Receive Date: 20060210
  Receipt Date: 20051118
  Transmission Date: 20060701
  Serious: No
  Sender: FDA-Public Use
  Company Number: US-GLAXOSMITHKLINE-A0582888A

PATIENT
  Age: 57 Year
  Sex: Female

DRUGS (6)
  1. PAXIL CR [Suspect]
     Indication: DEPRESSION
     Dosage: 25MG PER DAY
     Route: 048
     Dates: start: 20041101, end: 20041101
  2. QUETIAPINE [Concomitant]
  3. TRILEPTAL [Concomitant]
  4. SINEQUAN [Concomitant]
  5. CLIMARA [Concomitant]
  6. ZOCOR [Concomitant]

REACTIONS (2)
  - DEPRESSION [None]
  - PANIC ATTACK [None]
